FAERS Safety Report 9495485 (Version 1)
Quarter: 2013Q3

REPORT INFORMATION
  Report Type: Spontaneous
  Country: US (occurrence: US)
  Receive Date: 20130903
  Receipt Date: 20130903
  Transmission Date: 20140515
  Serious: Yes (Death)
  Sender: FDA-Public Use
  Company Number: US-BAYER-2013-105671

PATIENT
  Age: 75 Year
  Sex: Male
  Weight: 73.92 kg

DRUGS (4)
  1. BAYER ASPIRIN QUICK RELEASE CRYSTALS [Suspect]
     Indication: CHEST PAIN
     Dosage: 1 DOSE, ONCE
     Route: 048
     Dates: start: 2006
  2. BAYER ASPIRIN QUICK RELEASE CRYSTALS [Suspect]
     Indication: DYSPNOEA
  3. PLAVIX [Concomitant]
  4. LIPITOR [Concomitant]

REACTIONS (2)
  - Death [Fatal]
  - Off label use [None]
